FAERS Safety Report 12630413 (Version 1)
Quarter: 2016Q3

REPORT INFORMATION
  Report Type: Report from Study
  Country: US (occurrence: US)
  Receive Date: 20160808
  Receipt Date: 20160808
  Transmission Date: 20161109
  Serious: Yes (Other)
  Sender: FDA-Public Use
  Company Number: US-CORCEPT THERAPEUTICS INC.-US-2015CRT000698

PATIENT

DRUGS (7)
  1. PROGESTERONE. [Suspect]
     Active Substance: PROGESTERONE
     Indication: PRODUCT USED FOR UNKNOWN INDICATION
     Dosage: UNK
  2. KORLYM [Suspect]
     Active Substance: MIFEPRISTONE
     Indication: CUSHINGOID
     Dosage: UNK
     Dates: start: 20160601
  3. SPIRONOLACTONE. [Concomitant]
     Active Substance: SPIRONOLACTONE
     Indication: PRODUCT USED FOR UNKNOWN INDICATION
     Dosage: UNK
  4. LEVOTHYROXINE. [Concomitant]
     Active Substance: LEVOTHYROXINE
     Indication: PRODUCT USED FOR UNKNOWN INDICATION
     Dosage: UNK
  5. VITAMIN D                          /00107901/ [Concomitant]
     Active Substance: ERGOCALCIFEROL
     Indication: PRODUCT USED FOR UNKNOWN INDICATION
     Dosage: UNK
  6. KORLYM [Suspect]
     Active Substance: MIFEPRISTONE
     Indication: CUSHING^S SYNDROME
     Dosage: 300 MG, ONCE / TWICE DAILY
     Route: 048
     Dates: start: 20151020, end: 201512
  7. SIMVASTATIN. [Concomitant]
     Active Substance: SIMVASTATIN
     Indication: PRODUCT USED FOR UNKNOWN INDICATION
     Dosage: UNK

REACTIONS (13)
  - Musculoskeletal pain [Recovering/Resolving]
  - Amenorrhoea [Not Recovered/Not Resolved]
  - Abdominal pain [Not Recovered/Not Resolved]
  - Agitation [Unknown]
  - Ocular hyperaemia [Recovered/Resolved]
  - Terminal insomnia [Not Recovered/Not Resolved]
  - Cyst [Recovered/Resolved]
  - Hypokinesia [Not Recovered/Not Resolved]
  - Pain in extremity [Recovered/Resolved]
  - Metrorrhagia [Recovered/Resolved]
  - Therapeutic response unexpected [Not Recovered/Not Resolved]
  - Endometrial atrophy [Unknown]
  - Glassy eyes [Not Recovered/Not Resolved]

NARRATIVE: CASE EVENT DATE: 2015
